FAERS Safety Report 7447002-9 (Version None)
Quarter: 2011Q2

REPORT INFORMATION
  Report Type: 
  Country: None (occurrence: None)
  Receive Date: 20110429
  Receipt Date: 20110415
  Transmission Date: 20111010
  Serious: Yes (Hospitalization, Other)
  Sender: FDA-Public Use
  Company Number: US-ACTELION-A-US2011-44029

PATIENT

DRUGS (31)
  1. MIRTAZAPINE [Concomitant]
  2. SERTRALINE [Concomitant]
  3. OXYCODONE [Concomitant]
  4. POTASSIUM CHLORIDE [Concomitant]
  5. CELLCEPT [Concomitant]
  6. REVATIO [Concomitant]
  7. LORATADINE [Concomitant]
  8. LORAZEPAM [Concomitant]
  9. SIMVASTATIN [Concomitant]
  10. LEVETIRACETAM [Concomitant]
  11. FLUTICASONE PROPIONATE [Concomitant]
  12. ASPIRIN [Concomitant]
  13. ALBUTEROL [Concomitant]
  14. FERROUS GLUCONATE [Concomitant]
  15. VITAMIN D [Concomitant]
  16. FENTANYL [Concomitant]
  17. FUROSEMIDE [Concomitant]
  18. TRACLEER [Suspect]
     Indication: PULMONARY ARTERIAL HYPERTENSION
     Dosage: 125 MG, BID
     Route: 048
     Dates: end: 20101228
  19. GABAPENTIN [Concomitant]
  20. OMEPRAZOLE [Concomitant]
  21. ATORVASTATIN [Concomitant]
  22. MULTI-VITAMINS [Concomitant]
  23. FERROUS SULFATE TAB [Concomitant]
  24. DOCUSATE [Concomitant]
  25. OXYGEN [Concomitant]
  26. TRACLEER [Suspect]
     Dosage: 62.5 MG, BID
     Route: 048
     Dates: start: 20110121, end: 20110210
  27. TIOTROPIUM [Concomitant]
  28. TRACLEER [Suspect]
     Dosage: 62.5 MG, BID
     Route: 048
     Dates: start: 20100701
  29. PREDNISONE [Concomitant]
  30. ADVAIR DISKUS 100/50 [Concomitant]
  31. BISACODYL [Concomitant]

REACTIONS (17)
  - DYSPNOEA [None]
  - OEDEMA PERIPHERAL [None]
  - ASPARTATE AMINOTRANSFERASE INCREASED [None]
  - BLOOD ALKALINE PHOSPHATASE INCREASED [None]
  - PYREXIA [None]
  - ANAEMIA [None]
  - HEPATIC ENZYME INCREASED [None]
  - LIVER INJURY [None]
  - BLOOD BILIRUBIN INCREASED [None]
  - RENAL MASS [None]
  - BRONCHITIS [None]
  - ALANINE AMINOTRANSFERASE INCREASED [None]
  - PRODUCTIVE COUGH [None]
  - WEIGHT INCREASED [None]
  - PLATELET COUNT DECREASED [None]
  - FATIGUE [None]
  - RENAL CELL CARCINOMA [None]
